FAERS Safety Report 17978585 (Version 1)
Quarter: 2020Q3

REPORT INFORMATION
  Report Type: Spontaneous
  Country: PL (occurrence: PL)
  Receive Date: 20200703
  Receipt Date: 20200703
  Transmission Date: 20201103
  Serious: Yes (Other)
  Sender: FDA-Public Use
  Company Number: PL-ACCORD-188465

PATIENT
  Age: 66 Year
  Sex: Female
  Weight: 49 kg

DRUGS (2)
  1. PACLITAXEL ACCORD [Suspect]
     Active Substance: PACLITAXEL
     Indication: VAGINAL CANCER
     Dosage: DOSE: 250 THERAPY ONGOING
     Route: 042
     Dates: start: 20191127
  2. CARBOPLATIN ACCORD [Suspect]
     Active Substance: CARBOPLATIN
     Indication: VAGINAL CANCER
     Dosage: DOSE: 440 THERAPY ONGOING
     Route: 042
     Dates: start: 20191127

REACTIONS (2)
  - Vaginal infection [Recovering/Resolving]
  - Vulvitis [Recovering/Resolving]

NARRATIVE: CASE EVENT DATE: 20191218
